FAERS Safety Report 21471310 (Version 1)
Quarter: 2022Q4

REPORT INFORMATION
  Report Type: Report from Study
  Country: US (occurrence: US)
  Receive Date: 20221018
  Receipt Date: 20221018
  Transmission Date: 20230112
  Serious: No
  Sender: FDA-Public Use
  Company Number: US-ABBVIE-4147397

PATIENT
  Sex: Male

DRUGS (1)
  1. IMBRUVICA [Suspect]
     Active Substance: IBRUTINIB
     Indication: Chronic lymphocytic leukaemia
     Route: 048
     Dates: start: 20210122

REACTIONS (4)
  - Groin pain [Not Recovered/Not Resolved]
  - Haematospermia [Not Recovered/Not Resolved]
  - Muscle strain [Not Recovered/Not Resolved]
  - Inguinal mass [Unknown]
